FAERS Safety Report 9639135 (Version 2)
Quarter: 2013Q4

REPORT INFORMATION
  Report Type: Report from Study
  Country: PR (occurrence: PR)
  Receive Date: 20131022
  Receipt Date: 20131022
  Transmission Date: 20140711
  Serious: Yes (Hospitalization, Other)
  Sender: FDA-Public Use
  Company Number: PR-ABBVIE-13P-131-1116432-00

PATIENT
  Age: 68 Year
  Sex: Female
  Weight: 57.2 kg

DRUGS (22)
  1. HUMIRA [Suspect]
     Indication: RHEUMATOID ARTHRITIS
     Route: 058
     Dates: start: 2007, end: 201203
  2. HUMIRA [Suspect]
     Dosage: -NOV-2012
     Route: 050
  3. HUMIRA [Suspect]
     Route: 050
     Dates: start: 201212
  4. HUMIRA [Suspect]
     Route: 050
     Dates: start: 20130729
  5. METHOTREXATE [Concomitant]
     Indication: RHEUMATOID ARTHRITIS
     Dosage: 1 TABLET DAILY BY 3 DAYS, WEEKLY
     Route: 048
  6. SYNTHROID [Concomitant]
     Indication: HYPOTHYROIDISM
     Route: 048
     Dates: start: 2000
  7. PROVENTIL [Concomitant]
     Route: 050
     Dates: start: 1969
  8. ALBUTEROL THERAPIES [Concomitant]
     Indication: ASTHMA
     Dosage: 1 THERAPY EVERY 6 HOURS AS NEEDED
     Route: 055
  9. PRILOSEC [Concomitant]
     Route: 048
  10. AZELASTINE [Concomitant]
     Indication: PRODUCT USED FOR UNKNOWN INDICATION
     Dosage: 1 PUMP ON EACH NOSTRIL DAILY
     Route: 055
  11. COZAAR [Concomitant]
     Route: 048
     Dates: start: 2005
  12. BONIVA [Concomitant]
     Route: 048
     Dates: start: 2008
  13. KLONOPIN [Concomitant]
     Indication: PAIN
     Route: 048
     Dates: start: 2007
  14. NEURONTIN [Concomitant]
     Indication: NEUROPATHY PERIPHERAL
     Dosage: 400-800 MILIGRAMS DAILY
     Route: 048
  15. ESTRADIOL [Concomitant]
     Indication: HORMONE THERAPY
     Route: 048
  16. FOLIC ACID [Concomitant]
     Indication: VITAMIN SUPPLEMENTATION
     Route: 048
  17. ACTICAL [Concomitant]
     Indication: SUPPLEMENTATION THERAPY
     Route: 048
  18. PROTECT PLUS [Concomitant]
     Indication: SUPPLEMENTATION THERAPY
     Route: 048
  19. LIPOFLAVONOID [Concomitant]
     Route: 048
  20. B 12 [Concomitant]
     Indication: VITAMIN SUPPLEMENTATION
     Route: 048
     Dates: start: 201306
  21. RESTASIS [Concomitant]
     Indication: DRY EYE
     Dosage: 1 DROP ON EACH EYE TWO TIMES DAILY
     Route: 047
  22. REFRESH OPTIVE [Concomitant]
     Indication: DRY EYE
     Dosage: 1 DROP ON EACH EYE FOUR TIMES ON A DAY
     Route: 047

REACTIONS (6)
  - Ingrowing nail [Not Recovered/Not Resolved]
  - Chronic obstructive pulmonary disease [Not Recovered/Not Resolved]
  - Diverticulitis [Recovered/Resolved]
  - Hypercholesterolaemia [Not Recovered/Not Resolved]
  - Hypertriglyceridaemia [Not Recovered/Not Resolved]
  - Vitamin D deficiency [Not Recovered/Not Resolved]
